FAERS Safety Report 9415248 (Version 2)
Quarter: 2014Q3

REPORT INFORMATION
  Report Type: Report from Study
  Country: MX (occurrence: MX)
  Receive Date: 20130723
  Receipt Date: 20140708
  Transmission Date: 20150326
  Serious: Yes (Death, Other)
  Sender: FDA-Public Use
  Company Number: PHHY2013MX077948

PATIENT
  Age: 84 Year
  Sex: Female

DRUGS (8)
  1. ONBREZ [Suspect]
     Active Substance: INDACATEROL
     Indication: CHRONIC OBSTRUCTIVE PULMONARY DISEASE
     Dosage: 300 UG, QD
     Route: 055
     Dates: start: 201212, end: 201212
  2. PEMIX [Concomitant]
     Indication: HIATUS HERNIA
     Dosage: 3 DF, DAILY
     Dates: start: 201107
  3. ONBREZ [Suspect]
     Active Substance: INDACATEROL
     Dosage: 300 UG, BID
     Route: 055
     Dates: start: 201212
  4. PANTOPRAZOLE [Concomitant]
     Active Substance: PANTOPRAZOLE SODIUM
     Indication: GASTROOESOPHAGEAL REFLUX DISEASE
  5. MOTILIUM [Concomitant]
     Active Substance: DOMPERIDONE
     Indication: HIATUS HERNIA
     Dosage: 3 DF, DAILY
     Dates: start: 201107
  6. PANTOPRAZOLE [Concomitant]
     Active Substance: PANTOPRAZOLE SODIUM
     Indication: HIATUS HERNIA
     Dosage: 3 DF, DAILY
     Dates: start: 201107
  7. PROCORALAN [Concomitant]
     Active Substance: IVABRADINE
     Indication: CARDIAC DISORDER
     Dosage: 1 DF, DAILY
     Dates: start: 201101
  8. ASPIRINA [Concomitant]
     Active Substance: ASPIRIN
     Indication: CARDIAC DISORDER
     Dosage: 1 DF, DAILY
     Dates: start: 201101

REACTIONS (6)
  - Death [Fatal]
  - Incorrect dose administered [Not Recovered/Not Resolved]
  - Renal disorder [Unknown]
  - Diabetes mellitus [Unknown]
  - Cataract [Unknown]
  - Hypertension [Unknown]

NARRATIVE: CASE EVENT DATE: 2013
